FAERS Safety Report 9263221 (Version 2)
Quarter: 2013Q2

REPORT INFORMATION
  Report Type: Spontaneous
  Country: JP (occurrence: JP)
  Receive Date: 20130430
  Receipt Date: 20130516
  Transmission Date: 20140414
  Serious: Yes (Other)
  Sender: FDA-Public Use
  Company Number: JP-PFIZER INC-2013128877

PATIENT
  Age: 80 Year
  Sex: Female

DRUGS (8)
  1. TOVIAZ [Suspect]
     Dosage: 4 MG, DAILY
     Route: 048
     Dates: start: 20130409, end: 20130409
  2. MAGMITT [Concomitant]
     Dosage: 990 MG, DAILY
     Route: 048
  3. ADALAT [Concomitant]
     Dosage: 10 MG, DAILY
     Route: 048
  4. FOIPAN [Concomitant]
     Dosage: UNK
  5. PROTECADIN [Concomitant]
     Dosage: UNK
     Route: 048
  6. LOXONIN [Concomitant]
     Dosage: UNK
     Route: 061
  7. ALLOID G [Concomitant]
     Dosage: 270 MG, DAILY
     Route: 048
  8. RECALBON [Concomitant]
     Dosage: UNK
     Route: 048

REACTIONS (1)
  - Sialoadenitis [Recovered/Resolved]
